FAERS Safety Report 21909587 (Version 1)
Quarter: 2023Q1

REPORT INFORMATION
  Report Type: Spontaneous
  Country: AU (occurrence: AU)
  Receive Date: 20230125
  Receipt Date: 20230125
  Transmission Date: 20230418
  Serious: Yes (Other)
  Sender: FDA-Public Use
  Company Number: AU-JNJFOC-20230137814

PATIENT
  Age: 78 Year
  Sex: Female

DRUGS (8)
  1. SIMPONI [Suspect]
     Active Substance: GOLIMUMAB
     Indication: Product used for unknown indication
     Route: 058
  2. CALTRATE [Concomitant]
     Active Substance: CALCIUM CARBONATE
  3. FISH OIL [Concomitant]
     Active Substance: FISH OIL
  4. FOLATE SODIUM [Concomitant]
     Active Substance: FOLATE SODIUM
  5. IRBESARTAN [Concomitant]
     Active Substance: IRBESARTAN
  6. METHOTREXATE [Concomitant]
     Active Substance: METHOTREXATE
  7. PANADOL [Concomitant]
     Active Substance: ACETAMINOPHEN
  8. SOLPRIN [ACETYLSALICYLIC ACID] [Concomitant]

REACTIONS (1)
  - IgA nephropathy [Recovering/Resolving]
